FAERS Safety Report 9887644 (Version 1)
Quarter: 2014Q1

REPORT INFORMATION
  Report Type: Spontaneous
  Country: US (occurrence: US)
  Receive Date: 20140211
  Receipt Date: 20140211
  Transmission Date: 20141002
  Serious: Yes (Hospitalization)
  Sender: FDA-Public Use
  Company Number: US-BAYER-2014-018876

PATIENT
  Age: 41 Year
  Sex: Female
  Weight: 179.59 kg

DRUGS (6)
  1. YASMIN [Suspect]
  2. DOXYCYCLINE [Concomitant]
     Dosage: 100 MG, UNK
  3. FLUTICASONE [Concomitant]
     Dosage: 50 ?G, UNK
  4. ALBUTEROL [Concomitant]
  5. PROCRIT [Concomitant]
     Indication: ANAEMIA
  6. IRON [Concomitant]

REACTIONS (2)
  - Deep vein thrombosis [None]
  - Thrombophlebitis superficial [None]
